FAERS Safety Report 23349274 (Version 1)
Quarter: 2023Q4

REPORT INFORMATION
  Report Type: Spontaneous
  Country: US (occurrence: US)
  Receive Date: 20231229
  Receipt Date: 20231229
  Transmission Date: 20240110
  Serious: Yes (Other)
  Sender: FDA-Public Use
  Company Number: US-GLAXOSMITHKLINE-US2023AMR179515

PATIENT

DRUGS (1)
  1. BUPROPION [Suspect]
     Active Substance: BUPROPION
     Indication: Product used for unknown indication
     Dosage: UNK

REACTIONS (8)
  - Arrhythmia [Unknown]
  - Tardive dyskinesia [Unknown]
  - Viral infection [Unknown]
  - Palpitations [Unknown]
  - Lethargy [Unknown]
  - Head discomfort [Unknown]
  - Balance disorder [Unknown]
  - Condition aggravated [Unknown]
